FAERS Safety Report 9107357 (Version 4)
Quarter: 2013Q2

REPORT INFORMATION
  Report Type: Report from Study
  Country: US (occurrence: US)
  Receive Date: 20130221
  Receipt Date: 20130419
  Transmission Date: 20140414
  Serious: Yes (Other)
  Sender: FDA-Public Use
  Company Number: US-TEVA-387012USA

PATIENT
  Age: 27 Year
  Sex: Female

DRUGS (1)
  1. CLARAVIS [Suspect]
     Dosage: 67 MILLIGRAM DAILY; 40MG 1QD (M,W,F) AND 3QD (T,TH,SAT,SUN)
     Route: 048
     Dates: start: 20121105, end: 20130210

REACTIONS (1)
  - Unintended pregnancy [Not Recovered/Not Resolved]
